FAERS Safety Report 17122584 (Version 1)
Quarter: 2019Q4

REPORT INFORMATION
  Report Type: Spontaneous
  Country: CA (occurrence: CA)
  Receive Date: 20191206
  Receipt Date: 20191206
  Transmission Date: 20200122
  Serious: Yes (Hospitalization, Other)
  Sender: FDA-Public Use
  Company Number: CA-PFIZER INC-2019523801

PATIENT
  Age: 34 Year
  Sex: Male

DRUGS (3)
  1. PREDNISONE. [Suspect]
     Active Substance: PREDNISONE
     Dosage: 50 MG, 1X/DAY (1 EVERY 24 HOURS)
     Route: 065
  2. MIDAZOLAM [Suspect]
     Active Substance: MIDAZOLAM HYDROCHLORIDE
     Dosage: 3 MG, UNK
     Route: 042
  3. FENTANYL CITRATE. [Suspect]
     Active Substance: FENTANYL CITRATE
     Dosage: 75 UG, UNK
     Route: 042

REACTIONS (2)
  - Nephrolithiasis [Recovered/Resolved]
  - Treatment failure [Recovered/Resolved]
